FAERS Safety Report 15425313 (Version 1)
Quarter: 2018Q3

REPORT INFORMATION
  Report Type: Spontaneous
  Country: US (occurrence: US)
  Receive Date: 20180925
  Receipt Date: 20180925
  Transmission Date: 20181010
  Serious: Yes (Other)
  Sender: FDA-Public Use
  Company Number: US-3M-2017-US-010112

PATIENT
  Age: 90 Year
  Sex: Male
  Weight: 65.32 kg

DRUGS (10)
  1. FINASTERIDE. [Concomitant]
     Active Substance: FINASTERIDE
  2. STANDARD PROCESS CARDIO PLUS [Concomitant]
  3. VITAMIN D3 [Concomitant]
     Active Substance: CHOLECALCIFEROL
  4. CATAPLEX F [Concomitant]
  5. PERIDEX [Suspect]
     Active Substance: CHLORHEXIDINE GLUCONATE
     Indication: DENTAL IMPLANTATION
     Dosage: POSSIBLY ONCE DAILY, BUT UNSURE
     Route: 048
     Dates: start: 20150514, end: 2015
  6. COMPLEX B [Concomitant]
     Active Substance: CALCIUM PANTOTHENATE\CYANOCOBALAMIN\NIACINAMIDE\PYRIDOXINE HYDROCHLORIDE\RIBOFLAVIN\THIAMINE MONONITRATE
  7. MULTIDOPHILUS [Concomitant]
  8. VITAMIN B [Concomitant]
     Active Substance: VITAMIN B
  9. OMEGA Q PLUS [Concomitant]
  10. COD LIVER OIL [Concomitant]
     Active Substance: COD LIVER OIL

REACTIONS (2)
  - Trichoglossia [Not Recovered/Not Resolved]
  - Dysgeusia [Not Recovered/Not Resolved]

NARRATIVE: CASE EVENT DATE: 2015
